FAERS Safety Report 5089510-4 (Version None)
Quarter: 2006Q3

REPORT INFORMATION
  Report Type: 
  Country: None (occurrence: None)
  Receive Date: 20060822
  Receipt Date: 20060807
  Transmission Date: 20061208
  Serious: Yes (Hospitalization)
  Sender: FDA-Public Use
  Company Number: 2006S1005280

PATIENT
  Age: 67 Year
  Sex: Male
  Weight: 113.3993 kg

DRUGS (12)
  1. OXALIPLATIN SOLUTION [Suspect]
     Indication: PANCREATIC NEOPLASM
     Dosage: 200 MG; QOW; INTRA
     Route: 042
     Dates: start: 20060425, end: 20060425
  2. BEVACIZUMAB SOLUTION (5MG/KG) [Suspect]
     Indication: PANCREATIC NEOPLASM
     Dosage: 570 MG; QOW; INTRA
     Route: 042
     Dates: start: 20060425, end: 20060425
  3. FLUOROURACIL [Suspect]
     Indication: PANCREATIC NEOPLASM
     Dosage: 950 MG; QOW; INTRA; SEE IMAGE
     Route: 042
     Dates: start: 20060425, end: 20060425
  4. FLUOROURACIL [Suspect]
     Indication: PANCREATIC NEOPLASM
     Dosage: 950 MG; QOW; INTRA; SEE IMAGE
     Route: 042
     Dates: start: 20060425, end: 20060425
  5. LEUCOVORIN CALCIUM [Suspect]
     Indication: PANCREATIC NEOPLASM
     Dosage: 475 MG; QOW; INTRA
     Route: 042
     Dates: start: 20060425, end: 20060425
  6. DEXAMETHASONE [Suspect]
     Dosage: 20 MG; QOW; INTRA
     Route: 042
     Dates: start: 20060411, end: 20060425
  7. LORAZEPAM [Suspect]
     Dosage: 1 MG; QOW; ORAL
     Route: 048
     Dates: start: 20060411, end: 20060425
  8. GRANISETRON HCL [Suspect]
     Dosage: 1200 UG; QOW; INTRA
     Dates: start: 20060411, end: 20060425
  9. PANTOPRAZOLE SODIUM [Concomitant]
  10. OCTREOTIDE ACETATE [Concomitant]
  11. GLUCOSE INJECTION [Concomitant]
  12. ACETYLSALICYLIC ACID [Concomitant]

REACTIONS (11)
  - ABDOMINAL PAIN UPPER [None]
  - ASPARTATE AMINOTRANSFERASE INCREASED [None]
  - BACTERAEMIA [None]
  - CHILLS [None]
  - DEHYDRATION [None]
  - DIARRHOEA [None]
  - FATIGUE [None]
  - FLATULENCE [None]
  - HYPOTENSION [None]
  - ORAL PAIN [None]
  - VOMITING [None]
